FAERS Safety Report 13745555 (Version 4)
Quarter: 2017Q3

REPORT INFORMATION
  Report Type: Report from Study
  Country: CO (occurrence: CO)
  Receive Date: 20170712
  Receipt Date: 20170831
  Transmission Date: 20171127
  Serious: Yes (Hospitalization)
  Sender: FDA-Public Use
  Company Number: PHHY2017CO101681

PATIENT
  Sex: Male
  Weight: 40 kg

DRUGS (1)
  1. ENTRESTO [Suspect]
     Active Substance: SACUBITRIL\VALSARTAN
     Indication: CARDIAC FAILURE
     Dosage: 50 MG, Q12H
     Route: 048
     Dates: start: 20170608

REACTIONS (9)
  - Asphyxia [Unknown]
  - Respiratory disorder [Unknown]
  - General physical health deterioration [Unknown]
  - Agitation [Unknown]
  - Feeling abnormal [Unknown]
  - Cardiac disorder [Unknown]
  - Restlessness [Unknown]
  - Diet refusal [Unknown]
  - Choking [Unknown]
